FAERS Safety Report 6366502-6 (Version None)
Quarter: 2009Q3

REPORT INFORMATION
  Report Type: 
  Country: None (occurrence: None)
  Receive Date: 20090921
  Receipt Date: 20090910
  Transmission Date: 20100115
  Serious: Yes (Other)
  Sender: FDA-Public Use
  Company Number: US-JNJFOC-20090903830

PATIENT
  Sex: Female
  Weight: 86.18 kg

DRUGS (9)
  1. REMICADE [Suspect]
     Route: 042
     Dates: start: 20090819, end: 20090902
  2. REMICADE [Suspect]
     Indication: CROHN'S DISEASE
     Dosage: TOTAL OF 2 DOSES
     Route: 042
     Dates: start: 20090819, end: 20090902
  3. ASACOL [Concomitant]
  4. RESTORIL [Concomitant]
     Indication: SLEEP DISORDER THERAPY
  5. WELLBUTRIN [Concomitant]
  6. PAXIL [Concomitant]
  7. DICYCLOMINE [Concomitant]
  8. NORVASC [Concomitant]
     Indication: HYPERTENSION
  9. PREVACID [Concomitant]
     Indication: NAUSEA

REACTIONS (6)
  - CANDIDIASIS [None]
  - DYSGEUSIA [None]
  - FATIGUE [None]
  - FEELING ABNORMAL [None]
  - HEADACHE [None]
  - TREMOR [None]
